FAERS Safety Report 9104163 (Version 2)
Quarter: 2013Q1

REPORT INFORMATION
  Report Type: Report from Study
  Country: US (occurrence: US)
  Receive Date: 20130219
  Receipt Date: 20130322
  Transmission Date: 20140127
  Serious: Yes (Death)
  Sender: FDA-Public Use
  Company Number: US-ROCHE-1191384

PATIENT
  Age: 67 Year
  Sex: Male
  Weight: 58.57 kg

DRUGS (3)
  1. AVASTIN [Suspect]
     Indication: SMALL INTESTINE CARCINOMA
     Route: 042
     Dates: start: 20120409, end: 20120521
  2. AVASTIN [Suspect]
     Route: 042
     Dates: end: 20120521
  3. IRINOTECAN [Concomitant]
     Indication: SMALL INTESTINE CARCINOMA
     Route: 042
     Dates: start: 20120409, end: 20120521

REACTIONS (1)
  - Disease progression [Fatal]
